FAERS Safety Report 5420734-X (Version None)
Quarter: 2007Q3

REPORT INFORMATION
  Report Type: 
  Country: None (occurrence: None)
  Receive Date: 20070816
  Receipt Date: 20070809
  Transmission Date: 20080115
  Serious: Yes (Death)
  Sender: FDA-Public Use
  Company Number: 430006E071TA

PATIENT
  Age: 69 Year
  Sex: Male

DRUGS (11)
  1. NOVANTRONE [Suspect]
     Dates: start: 20070614, end: 20070618
  2. GEMTUZUMAB OZOGAMICIN (GEMTUZUMAB OZOGAMICIN) [Suspect]
     Dosage: 10 MG
     Dates: start: 20070522, end: 20070608
  3. MORPHINE [Concomitant]
  4. PIPERACILLIN AND TAZOBACTAM [Concomitant]
  5. LINEZOLID [Concomitant]
  6. LEVOFLOXACIN [Concomitant]
  7. AMPHOTERICIN B [Concomitant]
  8. CASPOFUNGIN ACETATE [Concomitant]
  9. CYTARABINE [Suspect]
     Dates: start: 20070614, end: 20070620
  10. ETOPOSIDE [Suspect]
     Dates: start: 20070614, end: 20070616
  11. MICE THERAPY (ALL OTHER THERAPEUTIC PRODUCTS) [Suspect]

REACTIONS (4)
  - DYSPNOEA [None]
  - OLIGURIA [None]
  - PO2 DECREASED [None]
  - SEPTIC SHOCK [None]
